FAERS Safety Report 12624925 (Version 2)
Quarter: 2016Q3

REPORT INFORMATION
  Report Type: Spontaneous
  Country: US (occurrence: US)
  Receive Date: 20160805
  Receipt Date: 20160819
  Transmission Date: 20161109
  Serious: No
  Sender: FDA-Public Use
  Company Number: US-PFIZER INC-2016367001

PATIENT
  Age: 48 Year
  Sex: Male

DRUGS (19)
  1. GABAPENTIN. [Suspect]
     Active Substance: GABAPENTIN
     Indication: DIABETIC NEUROPATHY
     Dosage: 100 MG, 3X/DAY
     Route: 048
  2. NEURONTIN [Suspect]
     Active Substance: GABAPENTIN
     Dosage: UNK, 1X/DAY (TAKEN UP TO 1200MG OR 1600MG A DAY)
  3. DOLOPHINE [Concomitant]
     Active Substance: METHADONE HYDROCHLORIDE
     Indication: PAIN
     Dosage: 5MG TWICE A DAY FOR ABOUT TWO WEEKS
     Route: 048
  4. GABAPENTIN. [Suspect]
     Active Substance: GABAPENTIN
     Dosage: 300 MG, 3X/DAY
     Route: 048
  5. LORAZEPAM. [Concomitant]
     Active Substance: LORAZEPAM
     Indication: ANXIETY
     Dosage: 1MG ONE TABLET BY MOUTH UP TO TWO TIMES A DAY AS NEEDED
     Route: 048
  6. LANTUS [Concomitant]
     Active Substance: INSULIN GLARGINE
  7. NEURONTIN [Suspect]
     Active Substance: GABAPENTIN
     Dosage: 300 MG, 3X/DAY
     Route: 048
  8. LYRICA [Suspect]
     Active Substance: PREGABALIN
     Dosage: 75 MG, UNK
  9. NEURONTIN [Suspect]
     Active Substance: GABAPENTIN
     Indication: DIABETIC NEUROPATHY
     Dosage: 100 MG, 3X/DAY
     Route: 048
  10. DOLOPHINE [Concomitant]
     Active Substance: METHADONE HYDROCHLORIDE
     Dosage: 5 MG, 3X/DAY
     Route: 048
  11. GABAPENTIN. [Suspect]
     Active Substance: GABAPENTIN
     Dosage: UNK, 1X/DAY(TAKEN UP TO 1200MG OR 1600MG A DAY)
  12. NOVOLOG PEN [Concomitant]
     Indication: DIABETES MELLITUS
     Dosage: UNK
  13. GABAPENTIN. [Suspect]
     Active Substance: GABAPENTIN
     Dosage: 400 MG, 3X/DAY OR MAYBE MORE
     Route: 048
  14. LYRICA [Suspect]
     Active Substance: PREGABALIN
     Indication: DIABETIC NEUROPATHY
     Dosage: 50MG ONE CAPSULE TWICE A DAY AS NEEDED
     Route: 048
  15. LORAZEPAM. [Concomitant]
     Active Substance: LORAZEPAM
     Indication: NAUSEA
  16. DOLOPHINE [Concomitant]
     Active Substance: METHADONE HYDROCHLORIDE
     Indication: PANCREATITIS CHRONIC
     Dosage: 2.5 MG, 2X/DAY
     Route: 048
  17. DOLOPHINE [Concomitant]
     Active Substance: METHADONE HYDROCHLORIDE
     Dosage: 10 MG, 3X/DAY
     Route: 048
  18. NEURONTIN [Suspect]
     Active Substance: GABAPENTIN
     Dosage: 400 MG, 3X/DAY OR MAYBE MORE
     Route: 048
  19. METFORMIN [Concomitant]
     Active Substance: METFORMIN HYDROCHLORIDE
     Dosage: UNK

REACTIONS (6)
  - Intentional product misuse [Unknown]
  - Eye movement disorder [Recovered/Resolved]
  - Paraesthesia [Unknown]
  - Product use issue [Unknown]
  - Vision blurred [Recovered/Resolved]
  - Confusional state [Unknown]
